FAERS Safety Report 25407513 (Version 1)
Quarter: 2025Q2

REPORT INFORMATION
  Report Type: Report from Study
  Country: US (occurrence: US)
  Receive Date: 20250606
  Receipt Date: 20250606
  Transmission Date: 20250717
  Serious: No
  Sender: DR REDDYS
  Company Number: US-DRL-USA-USA/2025/05/007834

PATIENT
  Sex: Male
  Weight: 15.28 kg

DRUGS (1)
  1. JAVYGTOR [Suspect]
     Active Substance: SAPROPTERIN DIHYDROCHLORIDE
     Indication: Phenylketonuria
     Route: 048

REACTIONS (6)
  - Illness [Unknown]
  - Pyrexia [Unknown]
  - Decreased appetite [Unknown]
  - Product dose omission in error [Unknown]
  - Overdose [Unknown]
  - Product prescribing error [Unknown]
